FAERS Safety Report 10067424 (Version 2)
Quarter: 2014Q2

REPORT INFORMATION
  Report Type: Spontaneous
  Country: US (occurrence: None)
  Receive Date: 20140407
  Receipt Date: 20140630
  Transmission Date: 20141212
  Serious: Yes (Other)
  Sender: FDA-Public Use
  Company Number: 2014P1002730

PATIENT
  Age: 37 Year
  Sex: Female

DRUGS (4)
  1. MYORISAN 40 MG [Suspect]
     Indication: ACNE
     Route: 048
     Dates: start: 20140224, end: 20140308
  2. LEXAPRO [Concomitant]
  3. SIGULAIR [Concomitant]
  4. ZYRTEC [Concomitant]

REACTIONS (1)
  - Mood swings [None]
